FAERS Safety Report 5360283-0 (Version None)
Quarter: 2007Q2

REPORT INFORMATION
  Report Type: 
  Country: None (occurrence: None)
  Receive Date: 20070614
  Receipt Date: 20070606
  Transmission Date: 20071010
  Serious: Yes (Death)
  Sender: FDA-Public Use
  Company Number: 20073826

PATIENT
  Age: 61 Year
  Sex: Female

DRUGS (5)
  1. LIORESAL [Suspect]
     Indication: MUSCLE SPASTICITY
     Dosage: 822.9 MCG, DAILY, INTRATHECAL
     Route: 037
  2. HYDROMORPHONE HCL [Concomitant]
  3. BUPIVACAINE [Concomitant]
  4. CLONIDINE [Concomitant]
  5. DROPERIDOL [Concomitant]

REACTIONS (1)
  - COLON CANCER [None]
